FAERS Safety Report 10744837 (Version 3)
Quarter: 2015Q1

REPORT INFORMATION
  Report Type: Report from Study
  Country: KR (occurrence: KR)
  Receive Date: 20150128
  Receipt Date: 20150309
  Transmission Date: 20150721
  Serious: Yes (Hospitalization)
  Sender: FDA-Public Use
  Company Number: KR-SA-2015SA007292

PATIENT
  Age: 82 Year
  Sex: Male
  Weight: 74 kg

DRUGS (2)
  1. LANTUS [Suspect]
     Active Substance: INSULIN GLARGINE
     Indication: DIABETES MELLITUS
     Dosage: DOSE:20 UNITS IN THE MORNING AND 6 UNITS IN THE AFTERNOON
     Route: 058
  2. APIDRA [Concomitant]
     Active Substance: INSULIN GLULISINE
     Indication: DIABETES MELLITUS
     Dosage: DOSE:8 UNIT(S)
     Route: 058

REACTIONS (5)
  - Pain in extremity [Recovering/Resolving]
  - Gout [Recovered/Resolved]
  - Drug administration error [Unknown]
  - Blood glucose increased [Unknown]
  - Peripheral swelling [Recovering/Resolving]

NARRATIVE: CASE EVENT DATE: 201501
